FAERS Safety Report 21357686 (Version 1)
Quarter: 2022Q3

REPORT INFORMATION
  Report Type: Spontaneous
  Country: US (occurrence: US)
  Receive Date: 20220921
  Receipt Date: 20220921
  Transmission Date: 20221027
  Serious: No
  Sender: FDA-Public Use
  Company Number: ADE22-004

PATIENT
  Age: 41 Year
  Sex: Female
  Weight: 106 kg

DRUGS (2)
  1. PACLITAXEL [Suspect]
     Active Substance: PACLITAXEL
     Indication: Ovarian cancer
     Dosage: 357 MG, Q3WEEKS
     Route: 042
     Dates: start: 20220224, end: 20220224
  2. PACLITAXEL [Suspect]
     Active Substance: PACLITAXEL
     Dosage: 357 MG, Q3WEEKS
     Route: 042
     Dates: start: 20220317, end: 20220317

REACTIONS (6)
  - Cough [Recovered/Resolved]
  - Feeling hot [Recovered/Resolved]
  - Dyspnoea [Not Recovered/Not Resolved]
  - Blood pressure decreased [Unknown]
  - Abdominal pain [Unknown]
  - Hyperhidrosis [Unknown]

NARRATIVE: CASE EVENT DATE: 20220224
